FAERS Safety Report 19812447 (Version 1)
Quarter: 2021Q3

REPORT INFORMATION
  Report Type: Spontaneous
  Country: CN (occurrence: CN)
  Receive Date: 20210910
  Receipt Date: 20210910
  Transmission Date: 20211014
  Serious: Yes (Other)
  Sender: FDA-Public Use
  Company Number: CN-009507513-2109CHN001025

PATIENT
  Age: 52 Year
  Sex: Female

DRUGS (4)
  1. AMLODIPINE BESYLATE. [Concomitant]
     Active Substance: AMLODIPINE BESYLATE
     Indication: HYPERTENSION
     Dosage: 5 MG, ONCE IN A DAY:
     Route: 048
     Dates: start: 20210721, end: 20210803
  2. SERETIDE [Concomitant]
     Active Substance: FLUTICASONE PROPIONATE\SALMETEROL XINAFOATE
     Dosage: 50 UG, TWICE IN A DAY, INDICATION WAS REPORTED AS BRONCHIAL DILATOR
     Dates: start: 20210721, end: 20210803
  3. INVANZ [Suspect]
     Active Substance: ERTAPENEM SODIUM
     Indication: ANTI-INFECTIVE THERAPY
     Dosage: 1 G, 3 TIMES IN A DAY
     Route: 042
     Dates: start: 20210721, end: 20210731
  4. DEPAKIN [Concomitant]
     Active Substance: VALPROATE SODIUM
     Indication: EPILEPSY
     Dosage: 0.5 G, ONCE IN A DAY
     Route: 048
     Dates: start: 20210721, end: 20210803

REACTIONS (2)
  - Inappropriate schedule of product administration [Unknown]
  - Epilepsy [Recovering/Resolving]

NARRATIVE: CASE EVENT DATE: 20210721
